FAERS Safety Report 8564438-3 (Version None)
Quarter: 2012Q3

REPORT INFORMATION
  Report Type: 
  Country: None (occurrence: None)
  Receive Date: 20120723
  Receipt Date: 20120710
  Transmission Date: 20120928
  Serious: Yes (Other)
  Sender: FDA-Public Use
  Company Number: AUR-APL-2012-03064

PATIENT
  Age: 47 Year
  Sex: Male
  Weight: 86.17 kg

DRUGS (2)
  1. VENLAFAXINE HCL [Suspect]
     Indication: ANXIETY
     Dosage: 37.5 MG (37.5 MG, 1 IN 1 D), ORAL
     Route: 048
     Dates: start: 20120705, end: 20120705
  2. PROPECIA [Concomitant]

REACTIONS (9)
  - EYELID OEDEMA [None]
  - RASH [None]
  - HEADACHE [None]
  - CHEST PAIN [None]
  - PAIN IN EXTREMITY [None]
  - SWELLING FACE [None]
  - PRESYNCOPE [None]
  - ALTERED STATE OF CONSCIOUSNESS [None]
  - DYSPNOEA [None]
